FAERS Safety Report 9474840 (Version 1)
Quarter: 2013Q3

REPORT INFORMATION
  Report Type: Report from Study
  Country: IT (occurrence: IT)
  Receive Date: 20130823
  Receipt Date: 20130823
  Transmission Date: 20140515
  Serious: Yes (Hospitalization)
  Sender: FDA-Public Use
  Company Number: PHHY2013IT089297

PATIENT
  Age: 60 Year
  Sex: Female

DRUGS (4)
  1. CICLOSPORIN [Suspect]
     Indication: RENAL TRANSPLANT
     Dosage: 100 MG, PER DAY
     Route: 048
     Dates: start: 20080703
  2. PANTECTA [Concomitant]
     Dates: start: 20070727
  3. TORVAST [Concomitant]
  4. DEURSIL [Concomitant]
     Dates: start: 20091011

REACTIONS (3)
  - Cholelithiasis [Recovered/Resolved]
  - Biliary dilatation [Recovered/Resolved]
  - Abdominal pain [Recovered/Resolved]
